FAERS Safety Report 7639042-1 (Version None)
Quarter: 2011Q3

REPORT INFORMATION
  Report Type: 
  Country: None (occurrence: None)
  Receive Date: 20110727
  Receipt Date: 20110718
  Transmission Date: 20111222
  Serious: Yes (Hospitalization, Other)
  Sender: FDA-Public Use
  Company Number: FR-ASTRAZENECA-2011SE43910

PATIENT
  Age: 0 Week
  Sex: Female
  Weight: 1.7 kg

DRUGS (5)
  1. TENORMIN [Suspect]
     Route: 064
     Dates: end: 20100101
  2. SECTRAL [Suspect]
     Route: 064
     Dates: start: 20100101, end: 20100506
  3. INDAPAMIDE [Suspect]
     Route: 064
     Dates: start: 20091017, end: 20100101
  4. METFORMIN HCL [Concomitant]
     Route: 064
     Dates: end: 20100101
  5. NICARDIPINE HCL [Suspect]
     Route: 064
     Dates: start: 20100101, end: 20100506

REACTIONS (3)
  - FOETAL GROWTH RESTRICTION [None]
  - PREMATURE BABY [None]
  - FOETAL ARRHYTHMIA [None]
